FAERS Safety Report 7646519-1 (Version None)
Quarter: 2011Q3

REPORT INFORMATION
  Report Type: 
  Country: None (occurrence: None)
  Receive Date: 20110729
  Receipt Date: 20110729
  Transmission Date: 20111222
  Serious: Yes (Other)
  Sender: FDA-Public Use
  Company Number: None

PATIENT
  Age: 82 Year
  Sex: Male
  Weight: 79.8331 kg

DRUGS (2)
  1. AZASITE [Suspect]
     Indication: SUPERFICIAL INJURY OF EYE
     Dosage: 1 DROP EA EYE 2X DAY EYE  7/20 PM/7/21, 22, 23 2X DAY
     Route: 047
     Dates: start: 20110720, end: 20110723
  2. AZASITE [Suspect]
     Indication: BLEPHARITIS
     Dosage: 1 DROP EA EYE 2X DAY EYE  7/20 PM/7/21, 22, 23 2X DAY
     Route: 047
     Dates: start: 20110720, end: 20110723

REACTIONS (3)
  - INCORRECT STORAGE OF DRUG [None]
  - PRURITUS [None]
  - MIDDLE INSOMNIA [None]
